FAERS Safety Report 6001310-7 (Version None)
Quarter: 2008Q4

REPORT INFORMATION
  Report Type: 
  Country: None (occurrence: None)
  Receive Date: 20081215
  Receipt Date: 20081208
  Transmission Date: 20090506
  Serious: Yes (Other)
  Sender: FDA-Public Use
  Company Number: PHHY2008US22203

PATIENT
  Sex: Female
  Weight: 77.8 kg

DRUGS (5)
  1. EXJADE [Suspect]
     Indication: IRON OVERLOAD
     Dosage: 1500 MG, QD
     Route: 048
     Dates: start: 20080915
  2. EXJADE [Suspect]
     Indication: SICKLE CELL ANAEMIA
     Dosage: UNK
  3. KEPPRA [Concomitant]
     Indication: CONVULSION
     Dosage: 1250 UNK, BID
     Route: 048
     Dates: start: 20060101
  4. VICODIN [Concomitant]
     Indication: PAIN
     Dosage: UNK
     Route: 048
  5. DICLOFENAC [Concomitant]
     Indication: PAIN
     Dosage: UNK
     Route: 048
     Dates: start: 20060101

REACTIONS (6)
  - ABDOMINAL DISTENSION [None]
  - DIARRHOEA [None]
  - FLUID RETENTION [None]
  - JOINT SWELLING [None]
  - OEDEMA PERIPHERAL [None]
  - SWELLING FACE [None]
